FAERS Safety Report 24940125 (Version 3)
Quarter: 2025Q2

REPORT INFORMATION
  Report Type: Spontaneous
  Country: US (occurrence: US)
  Receive Date: 20250207
  Receipt Date: 20250425
  Transmission Date: 20250716
  Serious: No
  Sender: BOEHRINGER INGELHEIM
  Company Number: US-Komodo Health-a23aa000005eFzxAAE

PATIENT
  Age: 54 Year
  Sex: Female

DRUGS (5)
  1. JARDIANCE [Suspect]
     Active Substance: EMPAGLIFLOZIN
     Indication: Type 2 diabetes mellitus
  2. MORPHINE [Concomitant]
     Active Substance: MORPHINE
     Indication: Spinal pain
  3. MORPHINE [Concomitant]
     Active Substance: MORPHINE
     Indication: Intervertebral disc degeneration
  4. OXYCODONE [Concomitant]
     Active Substance: OXYCODONE
     Indication: Spinal pain
  5. OXYCODONE [Concomitant]
     Active Substance: OXYCODONE
     Indication: Intervertebral disc degeneration

REACTIONS (1)
  - Urine alcohol test positive [Unknown]

NARRATIVE: CASE EVENT DATE: 20250123
